FAERS Safety Report 9851397 (Version 2)
Quarter: 2014Q2

REPORT INFORMATION
  Report Type: Spontaneous
  Country: US (occurrence: US)
  Receive Date: 20140129
  Receipt Date: 20140424
  Transmission Date: 20141212
  Serious: Yes (Other)
  Sender: FDA-Public Use
  Company Number: US-JNJFOC-20140110518

PATIENT
  Age: 35 Year
  Sex: Male
  Weight: 74.84 kg

DRUGS (8)
  1. EXTRA STRENGTH TYLENOL [Suspect]
     Route: 048
  2. EXTRA STRENGTH TYLENOL [Suspect]
     Indication: INFLUENZA LIKE ILLNESS
     Dosage: EVERY 4-6 HOURS, TOTAL INGESTION OF 6 TO 8 PER DAY
     Route: 048
     Dates: start: 20120306, end: 20120316
  3. TYLENOL [Suspect]
     Indication: BACK PAIN
     Dosage: 25 TO 30 PILLS IN ONE DAY
     Route: 065
  4. TYLENOL [Suspect]
     Indication: CHILLS
     Dosage: 25 TO 30 PILLS IN ONE DAY
     Route: 065
  5. TYLENOL [Suspect]
     Indication: PYREXIA
     Dosage: 25 TO 30 PILLS IN ONE DAY
     Route: 065
  6. ADVIL [Suspect]
     Indication: BACK PAIN
     Dosage: 5 TO 10 PILLS
     Route: 065
  7. ADVIL [Suspect]
     Indication: CHILLS
     Dosage: 5 TO 10 PILLS
     Route: 065
  8. ADVIL [Suspect]
     Indication: PYREXIA
     Dosage: 5 TO 10 PILLS
     Route: 065

REACTIONS (5)
  - Hepatitis toxic [Recovering/Resolving]
  - Hepatitis C [Recovering/Resolving]
  - Acute hepatic failure [Recovering/Resolving]
  - Toxicity to various agents [Recovering/Resolving]
  - Overdose [Unknown]
